FAERS Safety Report 12622974 (Version 4)
Quarter: 2019Q3

REPORT INFORMATION
  Report Type: Spontaneous
  Country: IT (occurrence: IT)
  Receive Date: 20160804
  Receipt Date: 20190710
  Transmission Date: 20191004
  Serious: Yes (Hospitalization, Other)
  Sender: FDA-Public Use
  Company Number: IT-GILEAD-2016-0225730

PATIENT
  Age: 70 Year
  Sex: Female
  Weight: 80 kg

DRUGS (16)
  1. SOVALDI [Suspect]
     Active Substance: SOFOSBUVIR
     Indication: CHRONIC HEPATITIS C
     Dosage: 400 MG, QD
     Route: 048
     Dates: start: 20160527
  2. PROPAFENONE. [Concomitant]
     Active Substance: PROPAFENONE
     Route: 048
  3. LORAZEPAM. [Concomitant]
     Active Substance: LORAZEPAM
     Indication: PSYCHOTIC DISORDER
  4. NORMIX [Concomitant]
     Active Substance: RIFAXIMIN
     Route: 048
  5. PROPAFENONE. [Concomitant]
     Active Substance: PROPAFENONE
     Route: 048
  6. ASPIRIN. [Concomitant]
     Active Substance: ASPIRIN
     Dosage: 100 MG, UNK
     Route: 048
  7. ENAPREN [Concomitant]
     Active Substance: ENALAPRIL MALEATE
     Route: 048
  8. ENAPREN [Concomitant]
     Active Substance: ENALAPRIL MALEATE
     Route: 048
  9. MODURETIC 5-50 [Concomitant]
     Active Substance: AMILORIDE HYDROCHLORIDE\HYDROCHLOROTHIAZIDE
     Route: 048
  10. DAKLINZA [Suspect]
     Active Substance: DACLATASVIR
     Indication: CHRONIC HEPATITIS C
     Dosage: 60 MG, QD
     Route: 048
     Dates: start: 20160527
  11. FLUIMUCIL [Concomitant]
     Active Substance: ACETYLCYSTEINE
  12. OLANZAPINE. [Concomitant]
     Active Substance: OLANZAPINE
     Indication: PSYCHOTIC DISORDER
     Route: 048
  13. MODURETIC 5-50 [Concomitant]
     Active Substance: AMILORIDE HYDROCHLORIDE\HYDROCHLOROTHIAZIDE
     Route: 048
  14. NORMIX [Concomitant]
     Active Substance: RIFAXIMIN
     Route: 048
  15. PORTOLAC [Concomitant]
     Active Substance: LACTITOL
  16. FOLINA                             /00024201/ [Concomitant]
     Active Substance: FOLIC ACID

REACTIONS (7)
  - Suicide attempt [Unknown]
  - Delusion [Recovering/Resolving]
  - Depression [Recovering/Resolving]
  - Hallucination, auditory [Recovering/Resolving]
  - Anxiety [Recovering/Resolving]
  - Psychotic disorder [Recovering/Resolving]
  - Delirium [Recovering/Resolving]

NARRATIVE: CASE EVENT DATE: 20160712
